FAERS Safety Report 6373341-9 (Version None)
Quarter: 2009Q3

REPORT INFORMATION
  Report Type: 
  Country: None (occurrence: None)
  Receive Date: 20090924
  Receipt Date: 20090505
  Transmission Date: 20100115
  Serious: Yes (Other)
  Sender: FDA-Public Use
  Company Number: US-ASTRAZENECA-2009UW07868

PATIENT
  Sex: Female
  Weight: 90.7 kg

DRUGS (1)
  1. SEROQUEL [Suspect]
     Route: 048

REACTIONS (5)
  - EYE DISORDER [None]
  - MENSTRUAL DISORDER [None]
  - THROMBOSIS [None]
  - TREMOR [None]
  - WEIGHT INCREASED [None]
